FAERS Safety Report 10248707 (Version 2)
Quarter: 2014Q2

REPORT INFORMATION
  Report Type: Spontaneous
  Country: GB (occurrence: None)
  Receive Date: 20140618
  Receipt Date: 20140630
  Transmission Date: 20141212
  Serious: Yes (Other)
  Sender: FDA-Public Use
  Company Number: ABR_01700_2014

PATIENT
  Age: 61 Year
  Sex: Male

DRUGS (7)
  1. ERYTHROPED (ERYTHROPED SUGAR FREE GRANULES) (NOT SPECIFIED) [Suspect]
     Indication: BACTERIAL INFECTION
     Dosage: 5 ML QID [250 MG/5 ML, 1 TEASPOON, 4 TIMES A DAY] ORAL
     Dates: start: 20140603, end: 20140610
  2. ERYTHROPED (ERYTHROPED SUGAR FREE GRANULES) (NOT SPECIFIED) [Suspect]
     Indication: SKIN ULCER
     Dosage: 5 ML QID [250 MG/5 ML, 1 TEASPOON, 4 TIMES A DAY] ORAL
     Dates: start: 20140603, end: 20140610
  3. SYTRON [Concomitant]
  4. VITAMIN B-12 [Concomitant]
  5. SERETIDE [Concomitant]
  6. VENTOLIN /00139501/ [Concomitant]
  7. VITAMIN D3 [Concomitant]

REACTIONS (8)
  - Incorrect dose administered [None]
  - Skin exfoliation [None]
  - Skin ulcer [None]
  - Condition aggravated [None]
  - Wound secretion [None]
  - Pruritus [None]
  - Local swelling [None]
  - Chest discomfort [None]
